FAERS Safety Report 4549336-4 (Version None)
Quarter: 2005Q1

REPORT INFORMATION
  Report Type: 
  Country: None (occurrence: None)
  Receive Date: 20050106
  Receipt Date: 20041227
  Transmission Date: 20050727
  Serious: Yes (Hospitalization)
  Sender: FDA-Public Use
  Company Number: 2005PK00007

PATIENT
  Sex: Male

DRUGS (1)
  1. NAROPIN [Suspect]
     Indication: SPINAL ANAESTHESIA

REACTIONS (2)
  - DEMYELINATION [None]
  - POST PROCEDURAL COMPLICATION [None]
